FAERS Safety Report 4640649-4 (Version None)
Quarter: 2005Q2

REPORT INFORMATION
  Report Type: 
  Country: None (occurrence: None)
  Receive Date: 20050419
  Receipt Date: 20050405
  Transmission Date: 20051028
  Serious: Yes (Hospitalization)
  Sender: FDA-Public Use
  Company Number: CIP05000830

PATIENT
  Age: 40 Year
  Sex: Male

DRUGS (1)
  1. DANTRIUM [Suspect]
     Dosage: IV BOLUS
     Route: 040
     Dates: start: 20050404, end: 20050405

REACTIONS (4)
  - BLOOD PRESSURE DECREASED [None]
  - CARDIAC FAILURE [None]
  - DRUG LEVEL INCREASED [None]
  - RENAL IMPAIRMENT [None]
